FAERS Safety Report 7414701-4 (Version None)
Quarter: 2011Q2

REPORT INFORMATION
  Report Type: 
  Country: None (occurrence: None)
  Receive Date: 20110414
  Receipt Date: 20110203
  Transmission Date: 20111010
  Serious: No
  Sender: FDA-Public Use
  Company Number: US-B.I. PHARMACEUTICALS,INC./RIDGEFIELD-2011-BP-03445BP

PATIENT
  Age: 64 Year
  Sex: Male

DRUGS (9)
  1. AMIODARONE [Concomitant]
     Indication: CARDIAC DISORDER
  2. DIGOXIN [Concomitant]
     Indication: CHRONIC OBSTRUCTIVE PULMONARY DISEASE
  3. ASPIRIN [Concomitant]
     Indication: CARDIAC DISORDER
  4. METOPROLOL TARTRATE [Concomitant]
     Indication: CARDIAC DISORDER
  5. PRADAXA [Suspect]
     Dates: start: 20110129
  6. PRILOSEC [Concomitant]
  7. ADVAIR HFA [Concomitant]
     Indication: CHRONIC OBSTRUCTIVE PULMONARY DISEASE
     Dates: start: 20070101
  8. ZOCOR [Concomitant]
     Indication: CARDIAC DISORDER
  9. MAG OXIDE [Concomitant]

REACTIONS (1)
  - HEADACHE [None]
